FAERS Safety Report 21974195 (Version 5)
Quarter: 2023Q2

REPORT INFORMATION
  Report Type: Spontaneous
  Country: FR (occurrence: FR)
  Receive Date: 20230209
  Receipt Date: 20230416
  Transmission Date: 20230722
  Serious: Yes (Hospitalization, Other)
  Sender: FDA-Public Use
  Company Number: FR-ALXN-A202301037

PATIENT
  Age: 20 Year
  Sex: Female
  Weight: 84 kg

DRUGS (6)
  1. ULTOMIRIS [Suspect]
     Active Substance: RAVULIZUMAB-CWVZ
     Indication: Paroxysmal nocturnal haemoglobinuria
     Dosage: 2700 MG, SINGLE
     Route: 065
     Dates: start: 20220712, end: 20220712
  2. ULTOMIRIS [Suspect]
     Active Substance: RAVULIZUMAB-CWVZ
     Dosage: 3300 MG, EVERY 8 WEEKS
     Route: 065
     Dates: start: 20220712, end: 20230121
  3. ORACILLINE                         /00001801/ [Concomitant]
     Indication: Antibiotic prophylaxis
     Dosage: 1000000 IU, BID
     Route: 065
     Dates: start: 20211209
  4. SULFADIAZINE [Concomitant]
     Active Substance: SULFADIAZINE
     Indication: Product used for unknown indication
     Dosage: UNK
     Route: 065
  5. SULFAMERAZINE [Concomitant]
     Active Substance: SULFAMERAZINE
     Indication: Product used for unknown indication
     Dosage: UNK
     Route: 065
  6. SULFAMETHAZINE [Concomitant]
     Active Substance: SULFAMETHAZINE
     Indication: Product used for unknown indication
     Dosage: UNK
     Route: 065

REACTIONS (1)
  - Meningitis meningococcal [Recovered/Resolved]

NARRATIVE: CASE EVENT DATE: 20230121
